FAERS Safety Report 15371682 (Version 1)
Quarter: 2018Q3

REPORT INFORMATION
  Report Type: Spontaneous
  Country: KR (occurrence: KR)
  Receive Date: 20180911
  Receipt Date: 20180911
  Transmission Date: 20181010
  Serious: Yes (Other)
  Sender: FDA-Public Use
  Company Number: PHHY2018KR087211

PATIENT
  Age: 44 Year
  Sex: Female

DRUGS (3)
  1. TRIAMCINOLONE ACETONIDE. [Suspect]
     Active Substance: TRIAMCINOLONE ACETONIDE
     Indication: NECROTISING SCLERITIS
     Dosage: 16 MG, QD
     Route: 048
  2. FLUOROMETHOLONE. [Suspect]
     Active Substance: FLUOROMETHOLONE
     Indication: NECROTISING SCLERITIS
     Dosage: UNK UNK, QID
     Route: 061
  3. LEVOFLOXACIN. [Suspect]
     Active Substance: LEVOFLOXACIN
     Indication: NECROTISING SCLERITIS
     Dosage: UNK UNK, QID
     Route: 065

REACTIONS (2)
  - Scleral thinning [Not Recovered/Not Resolved]
  - Product use in unapproved indication [Unknown]
